FAERS Safety Report 13031617 (Version 6)
Quarter: 2017Q2

REPORT INFORMATION
  Report Type: Spontaneous
  Country: US (occurrence: US)
  Receive Date: 20161215
  Receipt Date: 20170511
  Transmission Date: 20170830
  Serious: Yes (Death, Life-Threatening, Hospitalization, Other)
  Sender: FDA-Public Use
  Company Number: US-PFIZER INC-2016579525

PATIENT
  Age: 69 Year
  Sex: Female
  Weight: 108.8 kg

DRUGS (31)
  1. LYRICA [Suspect]
     Active Substance: PREGABALIN
     Indication: DIABETIC NEPHROPATHY
     Dosage: 150 MG, 2X/DAY
     Dates: end: 201505
  2. GABAPENTIN. [Concomitant]
     Active Substance: GABAPENTIN
     Dosage: 300 MG, ALTERNATE DAY
     Route: 048
     Dates: end: 20150509
  3. CLOPIDOGREL [Concomitant]
     Active Substance: CLOPIDOGREL BISULFATE
     Dosage: 75 MG, 1X/DAY
     Dates: end: 20150615
  4. CALCIUM CARBONATE. [Concomitant]
     Active Substance: CALCIUM CARBONATE
     Dosage: UNK
     Dates: end: 20150509
  5. OXYGEN. [Concomitant]
     Active Substance: OXYGEN
  6. LEVEMIR [Concomitant]
     Active Substance: INSULIN DETEMIR
  7. METOPROLOL TARTRATE. [Concomitant]
     Active Substance: METOPROLOL TARTRATE
     Dosage: UNK
  8. LOSARTAN. [Concomitant]
     Active Substance: LOSARTAN
     Dosage: 25 MG, UNK
  9. AMOXICILLIN. [Concomitant]
     Active Substance: AMOXICILLIN
     Dosage: 500 MG, UNK
  10. OMEPRAZOLE. [Concomitant]
     Active Substance: OMEPRAZOLE
     Dosage: 20 MG, UNK
  11. LEVEMIR [Concomitant]
     Active Substance: INSULIN DETEMIR
     Dosage: 65 IU, UNK
     Dates: start: 20150515
  12. LEVOTHYROXINE. [Concomitant]
     Active Substance: LEVOTHYROXINE
     Dosage: 137 UG, UNK
  13. SULFAMETHOXAZOLE AND TRIMETHOPRIM [Concomitant]
     Active Substance: SULFAMETHOXAZOLE\TRIMETHOPRIM
     Dosage: UNK (SULFAMETHOXAZOLE: 800 MG, TRIMETHOPRIM: 160 MG)
  14. HYDROCODONE [Concomitant]
     Active Substance: HYDROCODONE
  15. BENADRYL [Concomitant]
     Active Substance: DIPHENHYDRAMINE HYDROCHLORIDE
     Indication: PRURITUS
     Dosage: UNK
     Dates: end: 201505
  16. PANTOPRAZOLE [Concomitant]
     Active Substance: PANTOPRAZOLE
     Dosage: 20 MG, UNK
  17. SERTRALINE [Concomitant]
     Active Substance: SERTRALINE HYDROCHLORIDE
     Dosage: 25 MG, UNK
  18. RENVELA [Concomitant]
     Active Substance: SEVELAMER CARBONATE
     Dosage: 800 MG, UNK
  19. LOVASTATIN. [Concomitant]
     Active Substance: LOVASTATIN
  20. LEVEMIR [Concomitant]
     Active Substance: INSULIN DETEMIR
     Dosage: 70 IU, UNK
     Dates: start: 20150509, end: 20150514
  21. ALBUTEROL /00139501/ [Concomitant]
     Active Substance: ALBUTEROL
     Dosage: 2 DF, UNK
  22. ASPIRIN 81 [Concomitant]
     Active Substance: ASPIRIN
     Dosage: 81 MG, UNK
  23. ADVAIR HFA [Concomitant]
     Active Substance: FLUTICASONE PROPIONATE\SALMETEROL XINAFOATE
     Dosage: 2 DF, UNK
  24. NOVOLOG-V [Concomitant]
     Dosage: UNK (SLIDING SCALE)
  25. CLARITIN [Concomitant]
     Active Substance: LORATADINE
     Dosage: UNK
     Dates: end: 20150509
  26. DOCQLACE [Concomitant]
     Active Substance: DOCUSATE SODIUM
     Dosage: 100 MG, UNK
  27. LYRICA [Suspect]
     Active Substance: PREGABALIN
     Indication: PAIN
     Dosage: 75 MG, DAILY
     Dates: start: 20150509
  28. LYRICA [Suspect]
     Active Substance: PREGABALIN
     Dosage: 150 MG, 2X/DAY
     Dates: end: 20150715
  29. METOPROLOL TARTRATE. [Concomitant]
     Active Substance: METOPROLOL TARTRATE
     Dosage: 25 MG, UNK
  30. LEVOTHYROXINE. [Concomitant]
     Active Substance: LEVOTHYROXINE
     Dosage: 125 UG, UNK
  31. LEVOTHYROXINE. [Concomitant]
     Active Substance: LEVOTHYROXINE
     Dosage: 0.25 MG, UNK

REACTIONS (57)
  - Pulseless electrical activity [Unknown]
  - Acute respiratory failure [Not Recovered/Not Resolved]
  - Metabolic encephalopathy [Unknown]
  - Disease recurrence [Unknown]
  - Myocardial infarction [Unknown]
  - Electrocardiogram abnormal [Unknown]
  - Fall [Unknown]
  - Hypotension [Unknown]
  - Urinary tract infection [Unknown]
  - Headache [Unknown]
  - Pruritus [Unknown]
  - Acidosis [Unknown]
  - Decreased appetite [Unknown]
  - Aspartate aminotransferase increased [Unknown]
  - Seizure [Not Recovered/Not Resolved]
  - Hyperglycaemia [Not Recovered/Not Resolved]
  - Hypoxia [Not Recovered/Not Resolved]
  - Pancreatitis acute [Recovered/Resolved]
  - Muscular weakness [Recovering/Resolving]
  - Hypomagnesaemia [Recovered/Resolved]
  - Joint effusion [Unknown]
  - Leukocytosis [Recovered/Resolved]
  - Splenic lesion [Unknown]
  - Presyncope [Recovered/Resolved]
  - Vomiting [Recovered/Resolved]
  - Gastritis erosive [Unknown]
  - Hypoglycaemia [Unknown]
  - Muscle twitching [Recovering/Resolving]
  - Sleep apnoea syndrome [Unknown]
  - Fatigue [Unknown]
  - Anxiety [Recovered/Resolved]
  - Asthenia [Unknown]
  - Erosive duodenitis [Unknown]
  - Hypoglycaemia [Recovered/Resolved]
  - Confusional state [Recovered/Resolved]
  - Diarrhoea [Recovered/Resolved]
  - Nausea [Unknown]
  - White blood cell count increased [Unknown]
  - Death [Fatal]
  - Cardiac arrest [Unknown]
  - Pneumothorax [Not Recovered/Not Resolved]
  - Prescribed overdose [Unknown]
  - Loss of consciousness [Unknown]
  - Somnolence [Unknown]
  - Troponin increased [Unknown]
  - Oedema [Unknown]
  - Condition aggravated [Unknown]
  - Electroencephalogram abnormal [Unknown]
  - Malaise [Unknown]
  - Alanine aminotransferase increased [Recovered/Resolved]
  - Metabolic acidosis [Not Recovered/Not Resolved]
  - Transaminases increased [Recovered/Resolved]
  - Hypoxic-ischaemic encephalopathy [Not Recovered/Not Resolved]
  - Panic attack [Recovered/Resolved]
  - Dyspnoea [Unknown]
  - Myoclonus [Unknown]
  - Mental status changes [Recovered/Resolved]

NARRATIVE: CASE EVENT DATE: 2015
